APPROVED DRUG PRODUCT: DUTASTERIDE
Active Ingredient: DUTASTERIDE
Strength: 0.5MG
Dosage Form/Route: CAPSULE;ORAL
Application: A206373 | Product #001 | TE Code: AB
Applicant: ACELLA PHARMACEUTICALS LLC
Approved: Mar 17, 2016 | RLD: No | RS: No | Type: RX